FAERS Safety Report 6823234-5 (Version None)
Quarter: 2010Q3

REPORT INFORMATION
  Report Type: 
  Country: None (occurrence: None)
  Receive Date: 20100708
  Receipt Date: 20100628
  Transmission Date: 20110219
  Serious: Yes (Other)
  Sender: FDA-Public Use
  Company Number: GB-TEVA-239875ISR

PATIENT
  Age: 63 Year
  Sex: Male
  Weight: 85 kg

DRUGS (1)
  1. DICLOFENAC SODIUM [Suspect]
     Indication: HIP ARTHROPLASTY
     Route: 048
     Dates: start: 20030220, end: 20041201

REACTIONS (3)
  - ASTHENOPIA [None]
  - PORPHYRIA NON-ACUTE [None]
  - PRURITUS [None]
